FAERS Safety Report 21553963 (Version 1)
Quarter: 2022Q4

REPORT INFORMATION
  Report Type: Spontaneous
  Country: US (occurrence: None)
  Receive Date: 20221104
  Receipt Date: 20221104
  Transmission Date: 20230113
  Serious: Yes (Hospitalization)
  Sender: FDA-Public Use
  Company Number: US-ROCHE-3211690

PATIENT
  Age: 68 Year
  Sex: Male
  Weight: 97.610 kg

DRUGS (5)
  1. RITUXAN [Suspect]
     Active Substance: RITUXIMAB
     Indication: Anti-neutrophil cytoplasmic antibody positive vasculitis
     Dosage: ONE INTRAVENOUS INFUSION (375 MG/M2) EVERY 2 TO 3 WEEKS ;ONGOING: NO
     Route: 041
     Dates: start: 20211109, end: 20211127
  2. BACTRIM [Concomitant]
     Active Substance: SULFAMETHOXAZOLE\TRIMETHOPRIM
  3. IMURAN [Concomitant]
     Active Substance: AZATHIOPRINE
  4. CEFTIN [Concomitant]
     Active Substance: CEFUROXIME AXETIL
  5. CYTOXAN [Concomitant]
     Active Substance: CYCLOPHOSPHAMIDE

REACTIONS (1)
  - Platelet count abnormal [Recovered/Resolved]

NARRATIVE: CASE EVENT DATE: 20211201
